FAERS Safety Report 7633871-6 (Version None)
Quarter: 2011Q3

REPORT INFORMATION
  Report Type: 
  Country: None (occurrence: None)
  Receive Date: 20110725
  Receipt Date: 20110712
  Transmission Date: 20111222
  Serious: Yes (Other)
  Sender: FDA-Public Use
  Company Number: JP-ASTRAZENECA-2011SE32238

PATIENT
  Age: 78 Year
  Sex: Male

DRUGS (7)
  1. MEROPENEM [Suspect]
     Route: 042
     Dates: start: 20110515, end: 20110516
  2. CEFMETAZON [Concomitant]
  3. NI [Concomitant]
     Route: 048
  4. BIOFERMIN [Concomitant]
     Route: 048
  5. THYRADIN [Concomitant]
     Route: 048
  6. MEROPENEM [Suspect]
     Route: 042
     Dates: start: 20110515, end: 20110516
  7. CALCIUM CARBONATE [Concomitant]
     Route: 048

REACTIONS (1)
  - HEPATIC FUNCTION ABNORMAL [None]
